FAERS Safety Report 5156918-8 (Version None)
Quarter: 2006Q4

REPORT INFORMATION
  Report Type: 
  Country: None (occurrence: None)
  Receive Date: 20060918
  Receipt Date: 20060316
  Transmission Date: 20070319
  Serious: Yes (Hospitalization)
  Sender: FDA-Public Use
  Company Number: US-JNJFOC-20051202107

PATIENT
  Age: 76 Year
  Sex: Female
  Weight: 47.6277 kg

DRUGS (1)
  1. TOPAMAX [Suspect]
     Indication: MIGRAINE PROPHYLAXIS
     Dosage: 100 MG 1 IN 1 DAY ORAL
     Route: 048

REACTIONS (1)
  - DYSPNOEA [None]
